FAERS Safety Report 7539461-8 (Version None)
Quarter: 2011Q2

REPORT INFORMATION
  Report Type: 
  Country: None (occurrence: None)
  Receive Date: 20110609
  Receipt Date: 20110609
  Transmission Date: 20111010
  Serious: No
  Sender: FDA-Public Use
  Company Number: None

PATIENT
  Sex: Male

DRUGS (2)
  1. TEGRETOL [Suspect]
     Indication: ENCEPHALOPATHY
     Dosage: 100 MG 4 TABS 3X DAY
     Dates: start: 20030101
  2. TEGRETOL [Suspect]
     Indication: EPILEPSY
     Dosage: 100 MG 4 TABS 3X DAY
     Dates: start: 20030101

REACTIONS (4)
  - PRODUCT SUBSTITUTION ISSUE [None]
  - CONDITION AGGRAVATED [None]
  - FEELING ABNORMAL [None]
  - CRYING [None]
